FAERS Safety Report 7941681-5 (Version None)
Quarter: 2011Q4

REPORT INFORMATION
  Report Type: 
  Country: None (occurrence: None)
  Receive Date: 20111128
  Receipt Date: 20111128
  Transmission Date: 20120403
  Serious: Yes (Life-Threatening)
  Sender: FDA-Public Use
  Company Number: None

PATIENT
  Age: 41 Year
  Sex: Female
  Weight: 58.967 kg

DRUGS (1)
  1. BENADRYL HYDROCHLORIDE INJ [Suspect]
     Dates: start: 20110726, end: 20110726

REACTIONS (2)
  - DYSPNOEA [None]
  - THROAT IRRITATION [None]
